FAERS Safety Report 7257482-X (Version None)
Quarter: 2011Q1

REPORT INFORMATION
  Report Type: 
  Country: None (occurrence: None)
  Receive Date: 20110129
  Receipt Date: 20100524
  Transmission Date: 20110831
  Serious: No
  Sender: FDA-Public Use
  Company Number: US-ABBOTT-10P-163-0640874-00

PATIENT
  Sex: Male

DRUGS (3)
  1. HUMIRA [Suspect]
     Dosage: LOADING DOSE, NOT SPECIFIED, THEN 1 INJECTION EVERY 2 WEEKS
     Dates: start: 20091223, end: 20091223
  2. HUMIRA [Suspect]
  3. HUMIRA [Suspect]
     Indication: PSORIASIS
     Dates: start: 20080313, end: 20081201

REACTIONS (2)
  - PSORIASIS [None]
  - LYMPHOCYTE COUNT DECREASED [None]
